FAERS Safety Report 21316505 (Version 1)
Quarter: 2022Q3

REPORT INFORMATION
  Report Type: Report from Study
  Country: DE (occurrence: DE)
  Receive Date: 20220910
  Receipt Date: 20220910
  Transmission Date: 20221027
  Serious: Yes (Other)
  Sender: FDA-Public Use
  Company Number: DE-ABBVIE-22K-062-4532503-00

PATIENT

DRUGS (2)
  1. VENETOCLAX [Interacting]
     Active Substance: VENETOCLAX
     Indication: Acute myeloid leukaemia
     Route: 048
  2. VENETOCLAX [Interacting]
     Active Substance: VENETOCLAX
     Route: 048

REACTIONS (2)
  - Myelosuppression [Unknown]
  - Drug interaction [Unknown]
